FAERS Safety Report 11297090 (Version 1)
Quarter: 2015Q3

REPORT INFORMATION
  Report Type: Spontaneous
  Country: US (occurrence: US)
  Receive Date: 20150722
  Receipt Date: 20150722
  Transmission Date: 20151125
  Serious: No
  Sender: FDA-Public Use
  Company Number: US-ELI_LILLY_AND_COMPANY-US201102000872

PATIENT
  Sex: Female

DRUGS (2)
  1. PLAVIX [Concomitant]
     Active Substance: CLOPIDOGREL BISULFATE
     Dosage: UNK, UNKNOWN
     Route: 065
  2. EFFIENT [Suspect]
     Active Substance: PRASUGREL HYDROCHLORIDE
     Indication: STENT PLACEMENT
     Dosage: 5 MG (10MG TABLET BROKEN INTO HALF), UNKNOWN
     Route: 065
     Dates: start: 201005

REACTIONS (5)
  - Speech disorder [Unknown]
  - Sleep talking [Unknown]
  - Expired product administered [Unknown]
  - Product tampering [Unknown]
  - Fatigue [Not Recovered/Not Resolved]
